FAERS Safety Report 16807675 (Version 1)
Quarter: 2019Q3

REPORT INFORMATION
  Report Type: Spontaneous
  Country: CA (occurrence: CA)
  Receive Date: 20190914
  Receipt Date: 20190914
  Transmission Date: 20191005
  Serious: Yes (Other)
  Sender: FDA-Public Use
  Company Number: CA-JNJFOC-20190908017

PATIENT

DRUGS (2)
  1. ZANTAC [Suspect]
     Active Substance: RANITIDINE HYDROCHLORIDE
     Indication: REFLUX GASTRITIS
     Route: 065
  2. PEPCID [Suspect]
     Active Substance: FAMOTIDINE
     Indication: REFLUX GASTRITIS
     Route: 065

REACTIONS (7)
  - Drug hypersensitivity [Unknown]
  - Rash [Unknown]
  - Anaphylactic reaction [Unknown]
  - Food allergy [Unknown]
  - Hypersensitivity [Unknown]
  - Seasonal allergy [Unknown]
  - Asthma [Unknown]
